FAERS Safety Report 5794460-1 (Version None)
Quarter: 2008Q2

REPORT INFORMATION
  Report Type: 
  Country: None (occurrence: None)
  Receive Date: 20080630
  Receipt Date: 20080616
  Transmission Date: 20081010
  Serious: Yes (Other)
  Sender: FDA-Public Use
  Company Number: PHHY2008JP11668

PATIENT
  Age: 66 Year
  Sex: Female

DRUGS (5)
  1. LOCHOL [Suspect]
     Indication: HYPERLIPIDAEMIA
     Dosage: 30 MG/DAY
     Route: 048
     Dates: start: 20071025
  2. BASEN [Concomitant]
     Dosage: 0.3 MG
     Route: 048
     Dates: start: 20050101
  3. ALLOPURINOL [Concomitant]
     Dosage: UNK
     Route: 048
     Dates: start: 20050101
  4. NORVASC [Concomitant]
     Dosage: 5 MG
     Route: 048
     Dates: start: 20050101
  5. PAMILCON [Concomitant]
     Dosage: 30 MG
     Route: 048
     Dates: start: 20050101

REACTIONS (3)
  - ALANINE AMINOTRANSFERASE INCREASED [None]
  - ASPARTATE AMINOTRANSFERASE INCREASED [None]
  - LIVER DISORDER [None]
